FAERS Safety Report 17768656 (Version 1)
Quarter: 2020Q2

REPORT INFORMATION
  Report Type: Report from Study
  Country: US (occurrence: US)
  Receive Date: 20200512
  Receipt Date: 20200512
  Transmission Date: 20200714
  Serious: No
  Sender: FDA-Public Use
  Company Number: NVSC2018US003757

PATIENT
  Sex: Female

DRUGS (1)
  1. PATANOL [Suspect]
     Active Substance: OLOPATADINE HYDROCHLORIDE
     Indication: PRODUCT USED FOR UNKNOWN INDICATION
     Route: 065

REACTIONS (9)
  - Headache [Unknown]
  - Vision blurred [Unknown]
  - Dry eye [Unknown]
  - Ocular discomfort [Unknown]
  - Eye pruritus [Unknown]
  - Swelling of eyelid [Recovered/Resolved]
  - Treatment failure [Unknown]
  - Eye irritation [Unknown]
  - Eye pain [Unknown]
